FAERS Safety Report 14381096 (Version 2)
Quarter: 2018Q1

REPORT INFORMATION
  Report Type: Spontaneous
  Country: US (occurrence: US)
  Receive Date: 20180112
  Receipt Date: 20180119
  Transmission Date: 20180509
  Serious: No
  Sender: FDA-Public Use
  Company Number: US-MITSUBISHI TANABE PHARMA CORPORATION-MPE2018-0000419

PATIENT
  Age: 52 Year
  Sex: Male

DRUGS (5)
  1. RADICAVA [Suspect]
     Active Substance: EDARAVONE
     Indication: AMYOTROPHIC LATERAL SCLEROSIS
     Route: 042
     Dates: start: 20171228, end: 20171228
  2. MAXALT MELTS [Concomitant]
     Route: 065
  3. RADICAVA [Suspect]
     Active Substance: EDARAVONE
     Route: 042
     Dates: end: 20171227
  4. CYANOCOBALAMIN. [Concomitant]
     Active Substance: CYANOCOBALAMIN
     Route: 065
  5. RILUTEK [Concomitant]
     Active Substance: RILUZOLE
     Route: 065

REACTIONS (2)
  - Incorrect dose administered [Recovered/Resolved]
  - No adverse event [Recovered/Resolved]

NARRATIVE: CASE EVENT DATE: 20171228
